FAERS Safety Report 9554986 (Version 1)
Quarter: 2013Q3

REPORT INFORMATION
  Report Type: Spontaneous
  Country: US (occurrence: None)
  Receive Date: 20130912
  Receipt Date: 20130912
  Transmission Date: 20140515
  Serious: Yes (Hospitalization)
  Sender: FDA-Public Use
  Company Number: ADR-205-001

PATIENT
  Age: 56 Year
  Sex: Female
  Weight: 117.5 kg

DRUGS (1)
  1. MIDAZOLAM [Suspect]
     Indication: SURGERY
     Dates: start: 20130719

REACTIONS (3)
  - Somnolence [None]
  - Apnoea [None]
  - Oxygen saturation decreased [None]
